FAERS Safety Report 7373990-5 (Version None)
Quarter: 2011Q1

REPORT INFORMATION
  Report Type: 
  Country: None (occurrence: None)
  Receive Date: 20110325
  Receipt Date: 20110322
  Transmission Date: 20110831
  Serious: Yes (Other)
  Sender: FDA-Public Use
  Company Number: US-PFIZER INC-2011063634

PATIENT
  Sex: Female
  Weight: 84 kg

DRUGS (3)
  1. ZOLOFT [Concomitant]
     Indication: DEPRESSION
     Dosage: UNK
  2. CHANTIX [Suspect]
     Dosage: 1 MG, 2X/DAY
     Dates: start: 20110101, end: 20110208
  3. CHANTIX [Suspect]
     Indication: SMOKING CESSATION THERAPY
     Dosage: 0.5 MG, 1X/DAY
     Route: 048
     Dates: start: 20110123, end: 20110101

REACTIONS (7)
  - PAIN [None]
  - SKIN ULCER HAEMORRHAGE [None]
  - ABNORMAL DREAMS [None]
  - DEPRESSION [None]
  - BLISTER [None]
  - SCAR [None]
  - ABNORMAL BEHAVIOUR [None]
